FAERS Safety Report 17099838 (Version 2)
Quarter: 2019Q4

REPORT INFORMATION
  Report Type: Report from Study
  Country: US (occurrence: US)
  Receive Date: 20191202
  Receipt Date: 20191227
  Transmission Date: 20200122
  Serious: Yes (Other)
  Sender: FDA-Public Use
  Company Number: US-GILEAD-2019-0431910

PATIENT
  Age: 54 Year
  Sex: Female

DRUGS (3)
  1. AMBRISENTAN [Suspect]
     Active Substance: AMBRISENTAN
     Dosage: 5 MG, QD
     Route: 065
     Dates: start: 20111227, end: 20160219
  2. AMBRISENTAN [Suspect]
     Active Substance: AMBRISENTAN
     Indication: PULMONARY HYPERTENSION
     Dosage: 10 MG, QD
     Route: 048
     Dates: start: 20150417
  3. OXYGEN. [Concomitant]
     Active Substance: OXYGEN

REACTIONS (8)
  - Syncope [Unknown]
  - Nasal dryness [Not Recovered/Not Resolved]
  - Ear congestion [Not Recovered/Not Resolved]
  - Eructation [Not Recovered/Not Resolved]
  - Cyanosis [Recovered/Resolved]
  - Abdominal distension [Not Recovered/Not Resolved]
  - Nausea [Not Recovered/Not Resolved]
  - Cardiac disorder [Not Recovered/Not Resolved]

NARRATIVE: CASE EVENT DATE: 201909
